FAERS Safety Report 7840932-5 (Version None)
Quarter: 2011Q4

REPORT INFORMATION
  Report Type: 
  Country: None (occurrence: None)
  Receive Date: 20111021
  Receipt Date: 20111021
  Transmission Date: 20120403
  Serious: Yes (Other)
  Sender: FDA-Public Use
  Company Number: None

PATIENT
  Age: 65 Year
  Sex: Female
  Weight: 68.0396 kg

DRUGS (1)
  1. DICLOFENAC EPOLAMINE [Suspect]
     Indication: LIMB INJURY
     Dosage: 1 PATCH ON R. HEEL  1 X 2HRS  5/13  2HRS

REACTIONS (5)
  - INSOMNIA [None]
  - DEAFNESS UNILATERAL [None]
  - NAUSEA [None]
  - TINNITUS [None]
  - PALPITATIONS [None]
